FAERS Safety Report 4499505-7 (Version None)
Quarter: 2004Q4

REPORT INFORMATION
  Report Type: 
  Country: None (occurrence: None)
  Receive Date: 20040928
  Receipt Date: 20040623
  Transmission Date: 20050328
  Serious: No
  Sender: FDA-Public Use
  Company Number: 04P-163-0264622-00

PATIENT
  Age: 72 Year
  Sex: Female
  Weight: 64.8644 kg

DRUGS (5)
  1. HUMIRA [Suspect]
     Indication: RHEUMATOID ARTHRITIS
     Dosage: 40 MG, 1 IN 2 WK, SUBCUTANEOUS
     Route: 058
     Dates: start: 20040413
  2. HYDROXYCHLOROQUINE PHOSPHATE [Concomitant]
  3. STEROID [Concomitant]
  4. ALENDRONATE SODIUM [Concomitant]
  5. ORAL CONTRACEPTIVE NOS [Concomitant]

REACTIONS (1)
  - DRUG INEFFECTIVE [None]
